FAERS Safety Report 11969900 (Version 1)
Quarter: 2016Q1

REPORT INFORMATION
  Report Type: Spontaneous
  Country: US (occurrence: US)
  Receive Date: 20160128
  Receipt Date: 20160128
  Transmission Date: 20160526
  Serious: No
  Sender: FDA-Public Use
  Company Number: US-BRACCO-012110

PATIENT
  Age: 76 Year
  Sex: Female

DRUGS (1)
  1. CARDIOGEN-82 [Suspect]
     Active Substance: RUBIDIUM CHLORIDE RB-82
     Indication: POSITRON EMISSION TOMOGRAM
     Dates: start: 20110419, end: 20110419

REACTIONS (1)
  - Exposure to radiation [Unknown]

NARRATIVE: CASE EVENT DATE: 20110419
